FAERS Safety Report 8749400 (Version 2)
Quarter: 2012Q4

REPORT INFORMATION
  Report Type: Spontaneous
  Country: NL (occurrence: None)
  Receive Date: 20120806
  Receipt Date: 20120918
  Transmission Date: 20130627
  Serious: Yes (Hospitalization)
  Sender: FDA-Public Use
  Company Number: DSA_58796_2012

PATIENT
  Sex: Female

DRUGS (5)
  1. WELLBUTRIN [Suspect]
     Indication: PRODUCT USED FOR UNKNOWN INDICATION
     Route: 048
     Dates: start: 20120604
  2. METFORMIN [Concomitant]
  3. LABETALOL [Concomitant]
  4. TOLBUTAMIDE [Concomitant]
  5. SIMVASTATIN [Concomitant]

REACTIONS (3)
  - Transient ischaemic attack [None]
  - Speech disorder [None]
  - Hemiparesis [None]
